FAERS Safety Report 8585628-X (Version None)
Quarter: 2012Q3

REPORT INFORMATION
  Report Type: 
  Country: None (occurrence: None)
  Receive Date: 20120810
  Receipt Date: 20120808
  Transmission Date: 20120928
  Serious: Yes (Death, Hospitalization)
  Sender: FDA-Public Use
  Company Number: PHHY2012BR069096

PATIENT
  Age: 97 Year
  Sex: Female

DRUGS (1)
  1. DIOVAN [Suspect]
     Indication: HYPERTENSION
     Dosage: 0.5 DF (160 MG), DAILY

REACTIONS (3)
  - DEATH [None]
  - PNEUMONIA [None]
  - WRONG TECHNIQUE IN DRUG USAGE PROCESS [None]
